FAERS Safety Report 12295208 (Version 1)
Quarter: 2016Q2

REPORT INFORMATION
  Report Type: Spontaneous
  Country: US (occurrence: US)
  Receive Date: 20160422
  Receipt Date: 20160422
  Transmission Date: 20160815
  Serious: No
  Sender: FDA-Public Use
  Company Number: US-GLAXOSMITHKLINE-US2016GSK047406

PATIENT
  Sex: Male

DRUGS (2)
  1. ADVAIR HFA [Suspect]
     Active Substance: FLUTICASONE PROPIONATE\SALMETEROL XINAFOATE
     Dosage: UNK UNK, BID
     Dates: start: 20160406
  2. ASPIRIN. [Suspect]
     Active Substance: ASPIRIN

REACTIONS (5)
  - Insomnia [Not Recovered/Not Resolved]
  - Device use error [Not Recovered/Not Resolved]
  - Drug hypersensitivity [Unknown]
  - Adverse event [Not Recovered/Not Resolved]
  - Wrong technique in product usage process [Not Recovered/Not Resolved]
